FAERS Safety Report 22177238 (Version 2)
Quarter: 2023Q2

REPORT INFORMATION
  Report Type: Spontaneous
  Country: HR (occurrence: HR)
  Receive Date: 20230405
  Receipt Date: 20230421
  Transmission Date: 20230721
  Serious: Yes (Death, Hospitalization)
  Sender: FDA-Public Use
  Company Number: HR-ELI_LILLY_AND_COMPANY-HR202303015534

PATIENT
  Age: 66 Year
  Sex: Male

DRUGS (1)
  1. OLUMIANT [Suspect]
     Active Substance: BARICITINIB
     Indication: Dermatitis atopic
     Dosage: UNK UNK, UNKNOWN
     Route: 065

REACTIONS (2)
  - Death [Fatal]
  - Chronic obstructive pulmonary disease [Unknown]
